FAERS Safety Report 4713741-3 (Version None)
Quarter: 2005Q3

REPORT INFORMATION
  Report Type: 
  Country: None (occurrence: None)
  Receive Date: 20050713
  Receipt Date: 20050708
  Transmission Date: 20060218
  Serious: Yes (Hospitalization)
  Sender: FDA-Public Use
  Company Number: US_0411108016

PATIENT
  Age: 13 Year
  Sex: Female
  Weight: 81 kg

DRUGS (11)
  1. ZYPREXA [Suspect]
     Indication: SCHIZOPHRENIA
     Dosage: 30 MG AT BEDTIME
     Dates: start: 20040120, end: 20040322
  2. HUMULIN N [Concomitant]
  3. LAMOTRIGINE [Concomitant]
  4. ESCITALOPRAM OXALATE [Concomitant]
  5. FERROUS SULFATE TAB [Concomitant]
  6. DIPHENHYDRAMINE HCL [Concomitant]
  7. LITHIUM CARBONATE [Concomitant]
  8. QUETIAPINE FUMARATE [Concomitant]
  9. RISPERIDONE [Concomitant]
  10. ABILIFY [Concomitant]
  11. MIRTAZAPINE [Concomitant]

REACTIONS (26)
  - AKATHISIA [None]
  - BIPOLAR DISORDER [None]
  - BLOOD GLUCOSE INCREASED [None]
  - DECREASED APPETITE [None]
  - DEPRESSION [None]
  - DIABETES MELLITUS [None]
  - DIARRHOEA [None]
  - DISORIENTATION [None]
  - ELECTROENCEPHALOGRAM ABNORMAL [None]
  - EXCORIATION [None]
  - FEELING GUILTY [None]
  - GLYCOSYLATED HAEMOGLOBIN INCREASED [None]
  - HALLUCINATIONS, MIXED [None]
  - INFLUENZA LIKE ILLNESS [None]
  - INTENTIONAL SELF-INJURY [None]
  - IRON DEFICIENCY ANAEMIA [None]
  - PHARYNGITIS [None]
  - POLYDIPSIA [None]
  - POLYURIA [None]
  - PYRAMIDAL TRACT SYNDROME [None]
  - SUICIDAL IDEATION [None]
  - SUICIDE ATTEMPT [None]
  - SURGERY [None]
  - UPPER RESPIRATORY TRACT INFECTION [None]
  - VISION BLURRED [None]
  - WEIGHT INCREASED [None]
